FAERS Safety Report 8181635-X (Version None)
Quarter: 2012Q1

REPORT INFORMATION
  Report Type: 
  Country: None (occurrence: None)
  Receive Date: 20120302
  Receipt Date: 20120222
  Transmission Date: 20120608
  Serious: Yes (Hospitalization)
  Sender: FDA-Public Use
  Company Number: IT-PFIZER INC-2012018809

PATIENT
  Age: 77 Year
  Sex: Female

DRUGS (5)
  1. COLECALCIFEROL [Concomitant]
     Dosage: 300 IU, UNK
     Route: 048
     Dates: start: 20111225, end: 20111225
  2. MAPROTILINE HYDROCHLORIDE [Concomitant]
     Dosage: 50 MG, DAILY
     Route: 048
     Dates: start: 20111222, end: 20120104
  3. KETOPROFEN [Concomitant]
     Dosage: 2.5 %, UNK
     Route: 061
  4. ALPRAZOLAM [Suspect]
     Indication: ADJUSTMENT DISORDER WITH ANXIETY
     Dosage: 12 DROP DAILY; 2 DAYS
     Dates: start: 20111222, end: 20120104
  5. CENTELLASE [Concomitant]
     Dosage: 30 MG, DAILY
     Route: 048
     Dates: start: 20111222, end: 20120104

REACTIONS (2)
  - TOXIC SKIN ERUPTION [None]
  - RASH MACULAR [None]
